FAERS Safety Report 6154961-3 (Version None)
Quarter: 2009Q2

REPORT INFORMATION
  Report Type: 
  Country: None (occurrence: None)
  Receive Date: 20090414
  Receipt Date: 20090413
  Transmission Date: 20091009
  Serious: Yes (Other)
  Sender: FDA-Public Use
  Company Number: LT-RB-014076-09

PATIENT
  Age: 28 Year
  Sex: Male

DRUGS (1)
  1. SUBOXONE [Suspect]
     Dosage: DOSING INFORMATION UNKNOWN

REACTIONS (3)
  - ABNORMAL BEHAVIOUR [None]
  - MENTAL DISORDER [None]
  - WITHDRAWAL SYNDROME [None]
